FAERS Safety Report 25949036 (Version 1)
Quarter: 2025Q4

REPORT INFORMATION
  Report Type: Spontaneous
  Country: US (occurrence: None)
  Receive Date: 20251022
  Receipt Date: 20251022
  Transmission Date: 20260118
  Serious: Yes (Hospitalization)
  Sender: FDA-CTU
  Company Number: None

PATIENT
  Sex: Male
  Weight: 90 kg

DRUGS (2)
  1. OPSUMIT [Suspect]
     Active Substance: MACITENTAN
     Indication: Pulmonary arterial hypertension
     Dosage: FREQUENCY : DAILY;?
     Route: 048
     Dates: start: 20190507
  2. REMODULIN [Suspect]
     Active Substance: TREPROSTINIL

REACTIONS (5)
  - Infusion site infection [None]
  - Infusion site swelling [None]
  - Infusion site erythema [None]
  - Infusion site pain [None]
  - Cellulitis [None]
